FAERS Safety Report 16869030 (Version 5)
Quarter: 2022Q2

REPORT INFORMATION
  Report Type: Spontaneous
  Country: ES (occurrence: ES)
  Receive Date: 20190930
  Receipt Date: 20220422
  Transmission Date: 20220721
  Serious: Yes (Death, Other)
  Sender: FDA-Public Use
  Company Number: ES-JNJFOC-20190926591

PATIENT
  Age: 60 Year
  Sex: Female

DRUGS (3)
  1. TREMFYA [Suspect]
     Active Substance: GUSELKUMAB
     Indication: Product used for unknown indication
     Dosage: RECEIVED 2 DOSES TILL DATE
     Route: 065
     Dates: start: 20190704
  2. TREMFYA [Suspect]
     Active Substance: GUSELKUMAB
  3. AMLODIPINE BESYLATE\VALSARTAN [Concomitant]
     Active Substance: AMLODIPINE BESYLATE\VALSARTAN
     Indication: Product used for unknown indication

REACTIONS (2)
  - Death [Fatal]
  - Cervix carcinoma [Unknown]
